FAERS Safety Report 17884739 (Version 1)
Quarter: 2020Q2

REPORT INFORMATION
  Report Type: Spontaneous
  Country: DE (occurrence: DE)
  Receive Date: 20200611
  Receipt Date: 20200611
  Transmission Date: 20200714
  Serious: Yes (Other)
  Sender: FDA-Public Use
  Company Number: DE-MYLANLABS-2020M1056524

PATIENT
  Age: 40 Year
  Sex: Male

DRUGS (10)
  1. COLISTIN [Suspect]
     Active Substance: COLISTIN
     Indication: PNEUMONIA KLEBSIELLA
     Dosage: 1 MEGA-INTERNATIONAL UNIT, THREE TIMES A DAY
  2. MEROPENEM. [Suspect]
     Active Substance: MEROPENEM
     Indication: PNEUMONIA KLEBSIELLA
     Dosage: 2000 MILLIGRAM, THREE TIMES A DAY
     Route: 042
  3. LINEZOLID. [Suspect]
     Active Substance: LINEZOLID
     Indication: PNEUMONIA KLEBSIELLA
     Dosage: 600 MILLIGRAM
     Route: 065
  4. TOBRAMYCIN. [Suspect]
     Active Substance: TOBRAMYCIN
     Indication: PNEUMONIA KLEBSIELLA
     Dosage: UNK
     Route: 065
  5. CEFTAZIDIME. [Suspect]
     Active Substance: CEFTAZIDIME
     Indication: PNEUMONIA KLEBSIELLA
     Dosage: 2000 MILLIGRAM
     Route: 065
  6. COTRIMOXAZOLE [Suspect]
     Active Substance: SULFAMETHOXAZOLE\TRIMETHOPRIM
     Indication: PNEUMONIA KLEBSIELLA
     Dosage: 960 MILLIGRAM, QD
     Route: 048
  7. PREDNISOLONE. [Suspect]
     Active Substance: PREDNISOLONE
     Indication: IMMUNOSUPPRESSANT DRUG THERAPY
     Dosage: UNK
     Route: 065
  8. TACROLIMUS. [Suspect]
     Active Substance: TACROLIMUS
     Indication: IMMUNOSUPPRESSANT DRUG THERAPY
     Dosage: UNK
     Route: 065
  9. MYCOPHENOLIC ACID. [Suspect]
     Active Substance: MYCOPHENOLIC ACID
     Indication: IMMUNOSUPPRESSANT DRUG THERAPY
     Dosage: UNK
     Route: 065
  10. AVIBACTAM [Suspect]
     Active Substance: AVIBACTAM
     Indication: PNEUMONIA KLEBSIELLA
     Dosage: 500 MILLIGRAM, BID
     Route: 042

REACTIONS (2)
  - Drug ineffective [Unknown]
  - Pneumonia klebsiella [Recovering/Resolving]
